FAERS Safety Report 9581341 (Version 1)
Quarter: 2013Q4

REPORT INFORMATION
  Report Type: Spontaneous
  Country: US (occurrence: US)
  Receive Date: 20131002
  Receipt Date: 20131002
  Transmission Date: 20140711
  Serious: Yes (Hospitalization)
  Sender: FDA-Public Use
  Company Number: US-VIIV HEALTHCARE LIMITED-A1043602A

PATIENT
  Age: 73 Year
  Sex: Male

DRUGS (2)
  1. EPZICOM [Suspect]
     Indication: HIV INFECTION
     Route: 065
  2. LEXIVA [Suspect]
     Indication: HIV INFECTION
     Dosage: 700MG UNKNOWN
     Route: 065

REACTIONS (1)
  - Cardiac disorder [Unknown]
